FAERS Safety Report 6784429-2 (Version None)
Quarter: 2010Q2

REPORT INFORMATION
  Report Type: 
  Country: None (occurrence: None)
  Receive Date: 20100622
  Receipt Date: 20100611
  Transmission Date: 20101027
  Serious: Yes (Other)
  Sender: FDA-Public Use
  Company Number: US-JNJFOC-20100505389

PATIENT
  Age: 15 Month
  Sex: Female
  Weight: 9.98 kg

DRUGS (7)
  1. CHILDREN'S TYLENOL SUSPENSION [Suspect]
     Route: 048
  2. CHILDREN'S TYLENOL SUSPENSION [Suspect]
     Indication: TEETHING
     Route: 048
  3. CHILDREN'S MOTRIN [Suspect]
     Route: 048
  4. CHILDREN'S MOTRIN [Suspect]
     Indication: TEETHING
     Route: 048
  5. CONCENTRATED MOTRIN INFANTS DROPS [Suspect]
  6. CONCENTRATED MOTRIN INFANTS DROPS [Suspect]
     Indication: TEETHING
  7. ZYRTEC [Suspect]
     Indication: DRUG USE FOR UNKNOWN INDICATION

REACTIONS (2)
  - ERYTHEMA MULTIFORME [None]
  - PRODUCT QUALITY ISSUE [None]
